FAERS Safety Report 17730792 (Version 5)
Quarter: 2020Q3

REPORT INFORMATION
  Report Type: Spontaneous
  Country: US (occurrence: US)
  Receive Date: 20200430
  Receipt Date: 20200820
  Transmission Date: 20201102
  Serious: Yes (Death, Disabling, Other)
  Sender: FDA-Public Use
  Company Number: NVSC2020US116424

PATIENT
  Age: 89 Year
  Sex: Female

DRUGS (4)
  1. BEOVU [Suspect]
     Active Substance: BROLUCIZUMAB-DBLL
     Indication: NEOVASCULAR AGE-RELATED MACULAR DEGENERATION
     Dosage: 6 MG, UNKNOWN
     Route: 031
     Dates: start: 20191202
  2. EYLEA [Suspect]
     Active Substance: AFLIBERCEPT
     Indication: NEOVASCULAR AGE-RELATED MACULAR DEGENERATION
     Dosage: 2 MG
     Route: 031
     Dates: start: 20200518
  3. BEOVU [Suspect]
     Active Substance: BROLUCIZUMAB-DBLL
     Dosage: 6 MG, UNKNOWN
     Route: 031
     Dates: end: 20200210
  4. BEOVU [Suspect]
     Active Substance: BROLUCIZUMAB-DBLL
     Dosage: 6 MG, UNKNOWN
     Route: 031
     Dates: start: 20191230

REACTIONS (12)
  - Glaucoma [Unknown]
  - Visual field defect [Unknown]
  - Vitreous floaters [Unknown]
  - Vitritis [Unknown]
  - Death [Fatal]
  - Vitreous haze [Unknown]
  - Eye inflammation [Unknown]
  - Retinal vascular occlusion [Unknown]
  - Uveitis [Recovered/Resolved with Sequelae]
  - Macular degeneration [Unknown]
  - Visual acuity reduced [Recovering/Resolving]
  - Anterior chamber cell [Unknown]

NARRATIVE: CASE EVENT DATE: 20200214
